FAERS Safety Report 17307536 (Version 1)
Quarter: 2020Q1

REPORT INFORMATION
  Report Type: Spontaneous
  Country: BR (occurrence: BR)
  Receive Date: 20200123
  Receipt Date: 20200123
  Transmission Date: 20200409
  Serious: Yes (Other)
  Sender: FDA-Public Use
  Company Number: BR-009507513-2001BRA006462

PATIENT
  Age: 26 Year
  Sex: Female
  Weight: 84 kg

DRUGS (2)
  1. NUVARING [Suspect]
     Active Substance: ETHINYL ESTRADIOL\ETONOGESTREL
     Dosage: UNK
     Route: 067
     Dates: start: 2016, end: 201907
  2. NUVARING [Suspect]
     Active Substance: ETHINYL ESTRADIOL\ETONOGESTREL
     Dosage: 1 RING
     Route: 067
     Dates: start: 201905, end: 201907

REACTIONS (8)
  - Swelling [Unknown]
  - Vaginal discharge [Unknown]
  - Pregnancy on contraceptive [Unknown]
  - Maternal exposure during pregnancy [Unknown]
  - Metabolic surgery [Unknown]
  - Nausea [Unknown]
  - Amenorrhoea [Unknown]
  - Incorrect product administration duration [Unknown]

NARRATIVE: CASE EVENT DATE: 2019
